FAERS Safety Report 18457595 (Version 1)
Quarter: 2020Q4

REPORT INFORMATION
  Report Type: Spontaneous
  Country: GB (occurrence: GB)
  Receive Date: 20201103
  Receipt Date: 20201103
  Transmission Date: 20210114
  Serious: Yes (Hospitalization, Other)
  Sender: FDA-Public Use
  Company Number: GB-AMGEN-GBRSP2020175479

PATIENT
  Age: 72 Year
  Sex: Female
  Weight: 83 kg

DRUGS (9)
  1. DAKTARIN [MICONAZOLE] [Concomitant]
     Active Substance: MICONAZOLE
  2. CEFALEXIN [Concomitant]
     Active Substance: CEPHALEXIN
  3. WARFARIN [Concomitant]
     Active Substance: WARFARIN
  4. CANESTEN DUO [Concomitant]
  5. AMGEVITA [Suspect]
     Active Substance: ADALIMUMAB
     Dosage: 80 MILLIGRAM, Q2WK
     Route: 058
  6. CO-AMOXICLAVE [Concomitant]
     Active Substance: AMOXICILLIN\CLAVULANATE POTASSIUM
  7. AMGEVITA [Suspect]
     Active Substance: ADALIMUMAB
     Indication: CROHN^S DISEASE
     Dosage: 160 MILLIGRAM, Q2WK
     Route: 058
     Dates: start: 20200806
  8. AMGEVITA [Suspect]
     Active Substance: ADALIMUMAB
     Dosage: 40 MILLIGRAM, Q2WK
     Route: 058
  9. VEDOLIZUMAB [Concomitant]
     Active Substance: VEDOLIZUMAB

REACTIONS (6)
  - Vasculitic rash [Recovering/Resolving]
  - Rash vesicular [Recovering/Resolving]
  - Blister [Recovering/Resolving]
  - International normalised ratio abnormal [Recovering/Resolving]
  - Acute kidney injury [Recovering/Resolving]
  - Haematuria [Recovering/Resolving]

NARRATIVE: CASE EVENT DATE: 202009
